FAERS Safety Report 13870602 (Version 1)
Quarter: 2017Q3

REPORT INFORMATION
  Report Type: Report from Study
  Country: US (occurrence: US)
  Receive Date: 20170815
  Receipt Date: 20170815
  Transmission Date: 20171127
  Serious: Yes (Other)
  Sender: FDA-Public Use
  Company Number: US-GILEAD-2017-0283812

PATIENT
  Age: 76 Year
  Sex: Male

DRUGS (3)
  1. BLOOD [Concomitant]
     Active Substance: WHOLE BLOOD
     Route: 065
  2. IDELALISIB [Suspect]
     Active Substance: IDELALISIB
     Indication: B-CELL LYMPHOMA
     Dosage: 150 MG, QD
     Route: 048
     Dates: start: 20170720, end: 20170802
  3. IDELALISIB [Suspect]
     Active Substance: IDELALISIB
     Dosage: 150 MG, BID
     Route: 048
     Dates: start: 20170515, end: 20170616

REACTIONS (12)
  - Off label use [Recovered/Resolved]
  - Pyrexia [Recovered/Resolved]
  - Sepsis [Unknown]
  - Procedural pain [Unknown]
  - Tremor [Unknown]
  - Feeling cold [Unknown]
  - Dehydration [Unknown]
  - Device related infection [Unknown]
  - Nasopharyngitis [Recovered/Resolved]
  - Neuralgia [Unknown]
  - Nausea [Unknown]
  - Pain [Unknown]

NARRATIVE: CASE EVENT DATE: 20170712
